FAERS Safety Report 11284046 (Version 1)
Quarter: 2015Q3

REPORT INFORMATION
  Report Type: Spontaneous
  Country: JP (occurrence: JP)
  Receive Date: 20150720
  Receipt Date: 20150720
  Transmission Date: 20151125
  Serious: Yes (Death, Hospitalization, Other)
  Sender: FDA-Public Use
  Company Number: JP-PFIZER INC-2015239427

PATIENT
  Age: 57 Year
  Sex: Female
  Weight: 36 kg

DRUGS (13)
  1. CAMPTO [Suspect]
     Active Substance: IRINOTECAN
     Dosage: 150 MG, 1X/DAY
     Route: 041
     Dates: start: 20140331, end: 20140331
  2. ELPLAT [Suspect]
     Active Substance: OXALIPLATIN
     Indication: PANCREATIC CARCINOMA
     Dosage: 110 MG, 1X/DAY
     Route: 041
     Dates: start: 20140127, end: 20140127
  3. CAMPTO [Suspect]
     Active Substance: IRINOTECAN
     Indication: PANCREATIC CARCINOMA
     Dosage: 190 MG, 1X/DAY
     Route: 041
     Dates: start: 20140127, end: 20140127
  4. CAMPTO [Suspect]
     Active Substance: IRINOTECAN
     Dosage: 150 MG, 1X/DAY
     Route: 041
     Dates: start: 20140310, end: 20140310
  5. ELPLAT [Suspect]
     Active Substance: OXALIPLATIN
     Dosage: 65 MG, 1X/DAY
     Route: 041
     Dates: start: 20140310, end: 20140310
  6. ELPLAT [Suspect]
     Active Substance: OXALIPLATIN
     Dosage: 65 MG, 1X/DAY
     Route: 041
     Dates: start: 20140331, end: 20140331
  7. LEVOFOLINATE YAKULT [Suspect]
     Active Substance: LEVOLEUCOVORIN CALCIUM
     Dosage: 250 MG, 1X/DAY
     Route: 041
     Dates: start: 20140217, end: 20140217
  8. LEVOFOLINATE YAKULT [Suspect]
     Active Substance: LEVOLEUCOVORIN CALCIUM
     Dosage: 250 MG, 1X/DAY
     Route: 041
     Dates: start: 20140310, end: 20140310
  9. LEVOFOLINATE YAKULT [Suspect]
     Active Substance: LEVOLEUCOVORIN CALCIUM
     Dosage: 250 MG, 1X/DAY
     Route: 041
     Dates: start: 20140331, end: 20140331
  10. 5-FU [Concomitant]
     Active Substance: FLUOROURACIL
     Dosage: 3170 MG, ALTERNATE DAY
     Dates: start: 20140127, end: 20140331
  11. ELPLAT [Suspect]
     Active Substance: OXALIPLATIN
     Dosage: 80 MG, 1X/DAY
     Route: 041
     Dates: start: 20140217, end: 20140217
  12. CAMPTO [Suspect]
     Active Substance: IRINOTECAN
     Dosage: 150 MG, 1X/DAY
     Route: 041
     Dates: start: 20140217, end: 20140217
  13. LEVOFOLINATE YAKULT [Suspect]
     Active Substance: LEVOLEUCOVORIN CALCIUM
     Indication: PANCREATIC CARCINOMA
     Dosage: 260 MG, 1X/DAY
     Route: 041
     Dates: start: 20140127, end: 20140127

REACTIONS (10)
  - Fatigue [Recovered/Resolved]
  - Disease progression [Fatal]
  - Cholinergic syndrome [Unknown]
  - Vomiting [Recovered/Resolved]
  - Neutrophil count decreased [Recovered/Resolved]
  - Nausea [Not Recovered/Not Resolved]
  - Decreased appetite [Recovering/Resolving]
  - White blood cell count decreased [Recovering/Resolving]
  - Diarrhoea [Recovered/Resolved]
  - Pancreatic carcinoma [Fatal]

NARRATIVE: CASE EVENT DATE: 20140210
